FAERS Safety Report 6921443-8 (Version None)
Quarter: 2010Q3

REPORT INFORMATION
  Report Type: 
  Country: None (occurrence: None)
  Receive Date: 20100812
  Receipt Date: 20091204
  Transmission Date: 20110219
  Serious: No
  Sender: FDA-Public Use
  Company Number: A0833606A

PATIENT
  Age: 9 Year
  Sex: Male

DRUGS (2)
  1. TAGAMET HB 200 [Suspect]
     Indication: RASH
  2. ZYRTEC [Concomitant]

REACTIONS (2)
  - ABDOMINAL DISCOMFORT [None]
  - VOMITING [None]
